FAERS Safety Report 8345355-0 (Version None)
Quarter: 2012Q2

REPORT INFORMATION
  Report Type: 
  Country: None (occurrence: None)
  Receive Date: 20120508
  Receipt Date: 20120501
  Transmission Date: 20120825
  Serious: Yes (Death, Life-Threatening, Hospitalization)
  Sender: FDA-Public Use
  Company Number: US-CELGENEUS-163-50794-12043143

PATIENT
  Age: 80 Year
  Sex: Male
  Weight: 80.812 kg

DRUGS (9)
  1. VIDAZA [Suspect]
     Indication: PROSTATE CANCER
     Dosage: 286 MILLIGRAM
     Route: 041
     Dates: start: 20120419, end: 20120423
  2. DOCETAXEL [Suspect]
     Indication: PROSTATE CANCER
     Dosage: 143 MILLIGRAM
     Route: 041
     Dates: start: 20120424
  3. NEULASTA [Concomitant]
     Dosage: 6 MILLIGRAM
     Route: 065
     Dates: start: 20120425
  4. MOM [Concomitant]
     Indication: CONSTIPATION
     Route: 065
     Dates: start: 20120420, end: 20120422
  5. VANCOMYCIN [Concomitant]
     Route: 065
     Dates: start: 20120401
  6. DEXAMETHASONE [Concomitant]
     Route: 065
     Dates: start: 20110801
  7. CEFEPIME [Concomitant]
     Route: 065
     Dates: start: 20120401
  8. PREDNISONE TAB [Concomitant]
     Route: 065
     Dates: start: 20110801
  9. DULCOLAX [Concomitant]
     Indication: CONSTIPATION
     Route: 065
     Dates: start: 20120420, end: 20120422

REACTIONS (9)
  - HYPERKALAEMIA [None]
  - FEBRILE NEUTROPENIA [None]
  - HYPOTENSION [None]
  - MYOCARDIAL INFARCTION [None]
  - RESPIRATORY DISTRESS [None]
  - DIARRHOEA [None]
  - DEATH [None]
  - HYPONATRAEMIA [None]
  - RENAL IMPAIRMENT [None]
